FAERS Safety Report 5881033-5 (Version None)
Quarter: 2008Q3

REPORT INFORMATION
  Report Type: 
  Country: None (occurrence: None)
  Receive Date: 20080912
  Receipt Date: 20080617
  Transmission Date: 20090109
  Serious: No
  Sender: FDA-Public Use
  Company Number: US-ABBOTT-08P-163-0457751-00

PATIENT
  Sex: Male
  Weight: 90.8 kg

DRUGS (7)
  1. HUMIRA [Suspect]
     Indication: CROHN'S DISEASE
     Route: 058
     Dates: start: 20080401
  2. HUMIRA [Suspect]
  3. HUMIRA [Suspect]
  4. MESALAMINE [Concomitant]
     Indication: CROHN'S DISEASE
     Dosage: 3 TABS DAILY
     Route: 048
  5. MESALAMINE [Concomitant]
     Route: 054
     Dates: end: 20080401
  6. AZATHIOPRINE [Concomitant]
     Indication: DRUG USE FOR UNKNOWN INDICATION
     Dates: start: 20080617
  7. LOPERAMIDE HYDROCHLORIDE [Concomitant]
     Indication: CROHN'S DISEASE
     Route: 048

REACTIONS (3)
  - CROHN'S DISEASE [None]
  - DIARRHOEA [None]
  - HAEMATOCHEZIA [None]
